FAERS Safety Report 8669136 (Version 2)
Quarter: 2012Q4

REPORT INFORMATION
  Report Type: 
  Country: US (occurrence: US)
  Receive Date: 20120717
  Receipt Date: 20120911
  Transmission Date: 20130627
  Serious: Yes (Other)
  Sender: FDA-Public Use
  Company Number: US-PFIZER INC-2012169669

PATIENT
  Age: 60 Year
  Sex: Female
  Weight: 76 kg

DRUGS (3)
  1. PREMARIN [Suspect]
     Indication: HORMONE REPLACEMENT THERAPY
     Dosage: 0.45 mg, 1x/day
     Route: 048
     Dates: start: 1996, end: 2011
  2. PREMARIN [Suspect]
     Dosage: 0.45 mg, 1x/day
     Route: 048
     Dates: start: 201202, end: 2012
  3. LORAZEPAM [Concomitant]
     Dosage: 1 mg, 2x/day

REACTIONS (4)
  - Fibrocystic breast disease [Not Recovered/Not Resolved]
  - Blood pressure increased [Unknown]
  - Blood cholesterol increased [Unknown]
  - Glucose tolerance impaired [Unknown]
